FAERS Safety Report 9514545 (Version 2)
Quarter: 2013Q3

REPORT INFORMATION
  Report Type: Report from Study
  Country: JP (occurrence: JP)
  Receive Date: 20130911
  Receipt Date: 20130911
  Transmission Date: 20140515
  Serious: Yes (Hospitalization)
  Sender: FDA-Public Use
  Company Number: JP-BRISTOL-MYERS SQUIBB COMPANY-16529943

PATIENT
  Age: 56 Year
  Sex: Female
  Weight: 46.8 kg

DRUGS (4)
  1. ABILIFY TABS [Suspect]
     Indication: SCHIZOPHRENIA
     Route: 048
     Dates: start: 20120110, end: 20120409
  2. SENNOSIDE [Concomitant]
     Dosage: TABLETS
     Dates: start: 20120110
  3. DEPAS [Concomitant]
     Dosage: TABLETS
     Dates: start: 20120124
  4. LAXOBERON [Concomitant]
     Dosage: ORAL SOLUTION
     Route: 048
     Dates: start: 20120124

REACTIONS (3)
  - Hallucination, auditory [Recovered/Resolved]
  - Anxiety [Recovered/Resolved]
  - Insomnia [Recovered/Resolved]
